FAERS Safety Report 7687564-X (Version None)
Quarter: 2011Q3

REPORT INFORMATION
  Report Type: 
  Country: None (occurrence: None)
  Receive Date: 20110817
  Receipt Date: 20110812
  Transmission Date: 20111222
  Serious: Yes (Hospitalization)
  Sender: FDA-Public Use
  Company Number: US-TEVA-296307USA

PATIENT

DRUGS (1)
  1. BLEOMYCIN SULFATE [Suspect]

REACTIONS (5)
  - HYPERTENSION [None]
  - HYPOTENSION [None]
  - HEART RATE INCREASED [None]
  - THERAPEUTIC RESPONSE UNEXPECTED WITH DRUG SUBSTITUTION [None]
  - PYREXIA [None]
